FAERS Safety Report 7829319 (Version 4)
Quarter: 2013Q4

REPORT INFORMATION
  Report Type: Spontaneous
  Country: US (occurrence: US)
  Receive Date: 20110225
  Receipt Date: 20131106
  Transmission Date: 20140711
  Serious: Yes (Hospitalization)
  Sender: FDA-Public Use
  Company Number: US-B.I. PHARMACEUTICALS,INC./RIDGEFIELD-2011-BP-04985BP

PATIENT
  Age: 81 Year
  Sex: Male
  Weight: 81.65 kg

DRUGS (11)
  1. PRADAXA [Suspect]
     Indication: ATRIAL FIBRILLATION
     Dosage: 150 MG
     Route: 048
     Dates: start: 20110209, end: 20110216
  2. PRADAXA [Suspect]
     Indication: CARDIAC FAILURE CONGESTIVE
  3. PRADAXA [Suspect]
     Indication: ANTICOAGULANT THERAPY
  4. ISOSORB MONO [Concomitant]
  5. CARVEDILOL [Concomitant]
  6. LIPITOR [Concomitant]
  7. AMLODIPINE BENAZEPRIL [Concomitant]
  8. GLIMEPIRIDE [Concomitant]
     Dosage: 2 MG
  9. LANTUS [Concomitant]
  10. JANTOSEN [Concomitant]
  11. PLAVIX [Concomitant]

REACTIONS (5)
  - Anaemia [Unknown]
  - Gastrointestinal haemorrhage [Unknown]
  - Renal failure acute [Unknown]
  - Malaise [Unknown]
  - Feeling cold [Unknown]
